FAERS Safety Report 22151967 (Version 1)
Quarter: 2023Q1

REPORT INFORMATION
  Report Type: Spontaneous
  Country: TR (occurrence: TR)
  Receive Date: 20230329
  Receipt Date: 20230329
  Transmission Date: 20230417
  Serious: Yes (Other)
  Sender: FDA-Public Use
  Company Number: TR-002147023-NVSC2023TR062422

PATIENT

DRUGS (1)
  1. RUXOLITINIB [Suspect]
     Active Substance: RUXOLITINIB
     Indication: Myelofibrosis
     Dosage: UNK, BID (BEFORE APPROXIMATELY 1 YEAR)
     Route: 065

REACTIONS (2)
  - Lung neoplasm malignant [Unknown]
  - Second primary malignancy [Unknown]
